FAERS Safety Report 7356329-0 (Version None)
Quarter: 2011Q1

REPORT INFORMATION
  Report Type: 
  Country: None (occurrence: None)
  Receive Date: 20110316
  Receipt Date: 20110302
  Transmission Date: 20110831
  Serious: Yes (Other)
  Sender: FDA-Public Use
  Company Number: US-ROCHE-760906

PATIENT
  Sex: Female
  Weight: 49 kg

DRUGS (1)
  1. ACCUTANE [Suspect]
     Indication: ACNE
     Route: 048
     Dates: start: 20080101, end: 20101001

REACTIONS (2)
  - PREGNANCY [None]
  - NO ADVERSE EVENT [None]
